FAERS Safety Report 4900407-X (Version None)
Quarter: 2006Q1

REPORT INFORMATION
  Report Type: 
  Country: None (occurrence: None)
  Receive Date: 20060203
  Receipt Date: 20060123
  Transmission Date: 20060701
  Serious: Yes (Hospitalization)
  Sender: FDA-Public Use
  Company Number: FR-JNJFOC-20051205135

PATIENT
  Age: 92 Year
  Sex: Male

DRUGS (8)
  1. RISPERDAL [Suspect]
     Dosage: DOSE = TABLET
     Route: 048
  2. MOTILYO [Suspect]
     Indication: DRUG USE FOR UNKNOWN INDICATION
     Route: 048
  3. SEROPRAM [Suspect]
     Route: 048
  4. DOLIPRANE [Suspect]
     Indication: DRUG USE FOR UNKNOWN INDICATION
     Route: 048
  5. XANAX [Suspect]
     Indication: ANXIETY
     Route: 048
  6. LASILIX [Concomitant]
  7. OFLOCET [Concomitant]
  8. ASPEGIC [Concomitant]

REACTIONS (4)
  - CARDIAC FAILURE [None]
  - CYTOLYTIC HEPATITIS [None]
  - HEPATIC FAILURE [None]
  - RENAL FAILURE CHRONIC [None]
